FAERS Safety Report 8114014-1 (Version None)
Quarter: 2012Q1

REPORT INFORMATION
  Report Type: 
  Country: None (occurrence: None)
  Receive Date: 20120203
  Receipt Date: 20120125
  Transmission Date: 20120608
  Serious: Yes (Hospitalization)
  Sender: FDA-Public Use
  Company Number: US-ASTRAZENECA-2010SE52320

PATIENT
  Age: 68 Year
  Sex: Male

DRUGS (5)
  1. PROTONIX [Concomitant]
  2. LYRICA [Concomitant]
  3. PLAVIX [Concomitant]
  4. NEXIUM [Suspect]
     Route: 048
  5. ASPIRIN [Concomitant]

REACTIONS (5)
  - REGURGITATION [None]
  - PAIN [None]
  - INTESTINAL PERFORATION [None]
  - TRANSIENT ISCHAEMIC ATTACK [None]
  - DRUG DOSE OMISSION [None]
